FAERS Safety Report 4603894-X (Version None)
Quarter: 2005Q1

REPORT INFORMATION
  Report Type: 
  Country: None (occurrence: None)
  Receive Date: 20050308
  Receipt Date: 20050308
  Transmission Date: 20050727
  Serious: Yes (Other)
  Sender: FDA-Public Use
  Company Number: None

PATIENT
  Age: 59 Year
  Sex: Female
  Weight: 50 kg

DRUGS (1)
  1. DULOXETINE [Suspect]
     Indication: DEPRESSION
     Dates: start: 20041128, end: 20041130

REACTIONS (2)
  - JAW DISORDER [None]
  - PAIN [None]
